FAERS Safety Report 25504665 (Version 1)
Quarter: 2025Q3

REPORT INFORMATION
  Report Type: Spontaneous
  Country: US (occurrence: US)
  Receive Date: 20250702
  Receipt Date: 20250702
  Transmission Date: 20251020
  Serious: No
  Sender: EISAI
  Company Number: US-Eisai-EC-2025-192242

PATIENT
  Sex: Female

DRUGS (1)
  1. LEQEMBI [Suspect]
     Active Substance: LECANEMAB-IRMB
     Indication: Product used for unknown indication

REACTIONS (3)
  - Amyloid related imaging abnormality-oedema/effusion [Unknown]
  - Confusional state [Unknown]
  - Dizziness [Unknown]
